FAERS Safety Report 11646711 (Version 2)
Quarter: 2016Q1

REPORT INFORMATION
  Report Type: Spontaneous
  Country: US (occurrence: US)
  Receive Date: 20151020
  Receipt Date: 20160111
  Transmission Date: 20160525
  Serious: Yes (Hospitalization)
  Sender: FDA-Public Use
  Company Number: US-ROCHE-ITM201506IM018310

PATIENT
  Age: 68 Year
  Sex: Male
  Weight: 73.55 kg

DRUGS (1)
  1. ESBRIET [Suspect]
     Active Substance: PIRFENIDONE
     Indication: IDIOPATHIC PULMONARY FIBROSIS
     Route: 048
     Dates: start: 20150423

REACTIONS (3)
  - Dyspnoea [Unknown]
  - Coronary artery occlusion [Unknown]
  - Rash papular [Unknown]

NARRATIVE: CASE EVENT DATE: 201505
